FAERS Safety Report 5673166-3 (Version None)
Quarter: 2008Q1

REPORT INFORMATION
  Report Type: 
  Country: None (occurrence: None)
  Receive Date: 20080319
  Receipt Date: 20080312
  Transmission Date: 20080703
  Serious: Yes (Hospitalization)
  Sender: FDA-Public Use
  Company Number: FR-BRISTOL-MYERS SQUIBB COMPANY-14050314

PATIENT
  Age: 70 Year
  Sex: Female
  Weight: 45 kg

DRUGS (6)
  1. ORENCIA [Suspect]
     Indication: RHEUMATOID ARTHRITIS
     Route: 042
     Dates: start: 20071115, end: 20071216
  2. METHOTREXATE [Concomitant]
     Indication: RHEUMATOID ARTHRITIS
     Route: 048
  3. CORTANCYL [Concomitant]
     Route: 048
     Dates: start: 20041221
  4. ISOPTIN [Concomitant]
     Route: 048
  5. DIFFU-K [Concomitant]
  6. RIFINAH [Concomitant]
     Indication: LATENT TUBERCULOSIS
     Dosage: DOSAGE FROM = TABS
     Route: 048

REACTIONS (1)
  - HERPES ZOSTER [None]
